FAERS Safety Report 6665250-2 (Version None)
Quarter: 2010Q1

REPORT INFORMATION
  Report Type: 
  Country: None (occurrence: None)
  Receive Date: 20100330
  Receipt Date: 20100319
  Transmission Date: 20100710
  Serious: Yes (Hospitalization)
  Sender: FDA-Public Use
  Company Number: WAES 0908BRA00059

PATIENT
  Age: 46 Year
  Sex: Male

DRUGS (10)
  1. ISENTRESS [Suspect]
     Indication: HIV INFECTION
     Dosage: 400 MG/BID
     Route: 048
     Dates: start: 20080903
  2. TAB DARUNAVIR [Suspect]
     Indication: HIV INFECTION
     Dosage: 600 MIG/BID
     Route: 048
     Dates: start: 20070718
  3. TAB ETRAVIRINE [Suspect]
     Indication: HIV INFECTION
     Dosage: 2 DOSE/BID
     Route: 048
     Dates: start: 20070718
  4. LAMIVUDINE AND ZIDOVUDINE [Suspect]
     Indication: HIV INFECTION
     Dosage: 1 DOSE/BID
     Route: 048
  5. RITONAVIR [Suspect]
     Indication: HIV INFECTION
     Dosage: 100 MG/BID
     Route: 048
     Dates: start: 20070718
  6. CYANOCOBALAMIN [Concomitant]
  7. DICLOFENAC SODIUM [Concomitant]
  8. PYRIDOXINE HCL [Concomitant]
  9. SULFAMETHOXAZOLE AND TRIMETHOPRIM [Concomitant]
  10. THIAMINE [Concomitant]

REACTIONS (1)
  - MESENTERIC VEIN THROMBOSIS [None]
